FAERS Safety Report 11285639 (Version 5)
Quarter: 2016Q2

REPORT INFORMATION
  Report Type: Report from Study
  Country: US (occurrence: US)
  Receive Date: 20150720
  Receipt Date: 20160524
  Transmission Date: 20160815
  Serious: Yes (Hospitalization, Other)
  Sender: FDA-Public Use
  Company Number: PHEH2015US005826

PATIENT
  Age: 3 Year
  Sex: Male
  Weight: 18 kg

DRUGS (1)
  1. ILARIS [Suspect]
     Active Substance: CANAKINUMAB
     Dosage: 75 MG, EVERY 4 WEEKS
     Route: 058
     Dates: start: 20150223, end: 2016

REACTIONS (13)
  - Pain [Recovering/Resolving]
  - Diarrhoea [Unknown]
  - Juvenile idiopathic arthritis [Recovering/Resolving]
  - Abdominal discomfort [Unknown]
  - Histiocytosis haematophagic [Unknown]
  - Serum ferritin increased [Recovered/Resolved]
  - Vomiting [Unknown]
  - Haemoglobin decreased [Unknown]
  - Body temperature decreased [Recovered/Resolved]
  - Abdominal pain upper [Recovered/Resolved]
  - Pyrexia [Recovering/Resolving]
  - Malaise [Unknown]
  - Blood albumin decreased [Unknown]

NARRATIVE: CASE EVENT DATE: 20150306
